FAERS Safety Report 24154908 (Version 1)
Quarter: 2024Q3

REPORT INFORMATION
  Report Type: Report from Study
  Country: US (occurrence: US)
  Receive Date: 20240731
  Receipt Date: 20240731
  Transmission Date: 20241017
  Serious: Yes (Other)
  Sender: BRISTOL MYERS SQUIBB
  Company Number: US-BRISTOL-MYERS SQUIBB COMPANY-2024-115947

PATIENT
  Age: 46 Year
  Sex: Female

DRUGS (1)
  1. OPDUALAG [Suspect]
     Active Substance: NIVOLUMAB\RELATLIMAB-RMBW
     Indication: Malignant melanoma
     Dosage: 480/160 MG
     Route: 042
     Dates: start: 20240521

REACTIONS (4)
  - Feeling abnormal [Unknown]
  - Loss of consciousness [Unknown]
  - Chest pain [Unknown]
  - Troponin increased [Unknown]

NARRATIVE: CASE EVENT DATE: 20240709
